FAERS Safety Report 17733847 (Version 2)
Quarter: 2020Q2

REPORT INFORMATION
  Report Type: Spontaneous
  Country: FR (occurrence: FR)
  Receive Date: 20200501
  Receipt Date: 20200506
  Transmission Date: 20200714
  Serious: Yes (Hospitalization)
  Sender: FDA-Public Use
  Company Number: FR-PFIZER INC-2020171153

PATIENT
  Age: 43 Year
  Sex: Female

DRUGS (11)
  1. LUTERAN [Concomitant]
     Active Substance: CHLORMADINONE ACETATE
  2. TOPALGIC [Concomitant]
  3. VESICARE [Concomitant]
     Active Substance: SOLIFENACIN SUCCINATE
  4. NEBIVOLOL. [Concomitant]
     Active Substance: NEBIVOLOL
  5. RIVOTRIL [Concomitant]
     Active Substance: CLONAZEPAM
  6. CANDESARTAN CILEXETIL. [Suspect]
     Active Substance: CANDESARTAN CILEXETIL
     Indication: HYPERTENSION
     Dosage: 16 MG, 1X/DAY
     Route: 048
  7. LAROXYL [Concomitant]
     Active Substance: AMITRIPTYLINE HYDROCHLORIDE
  8. SOLU-MEDROL [Suspect]
     Active Substance: METHYLPREDNISOLONE SODIUM SUCCINATE
     Indication: MULTIPLE SCLEROSIS RELAPSE
     Dosage: 1 G, 1X/DAY
     Route: 042
     Dates: start: 20200325, end: 20200327
  9. DESLORATADINE. [Concomitant]
     Active Substance: DESLORATADINE
  10. NEURONTIN [Concomitant]
     Active Substance: GABAPENTIN
  11. OCREVUS [Suspect]
     Active Substance: OCRELIZUMAB
     Indication: MULTIPLE SCLEROSIS
     Dosage: 1 DF/S
     Route: 042
     Dates: start: 20190905

REACTIONS (1)
  - Coronavirus infection [Not Recovered/Not Resolved]

NARRATIVE: CASE EVENT DATE: 20200328
